FAERS Safety Report 8726954 (Version 2)
Quarter: 2015Q2

REPORT INFORMATION
  Report Type: Report from Study
  Country: US (occurrence: US)
  Receive Date: 20120816
  Receipt Date: 20150403
  Transmission Date: 20150821
  Serious: Yes (Hospitalization)
  Sender: FDA-Public Use
  Company Number: US-ROCHE-1100874

PATIENT
  Age: 55 Year
  Sex: Male

DRUGS (18)
  1. ACTIVASE [Suspect]
     Active Substance: ALTEPLASE
     Route: 042
  2. ACTIVASE [Suspect]
     Active Substance: ALTEPLASE
     Route: 042
  3. LOPRESSOR [Concomitant]
     Active Substance: METOPROLOL TARTRATE
     Dosage: TWICE IN 15 MINUTES
     Route: 065
  4. INSULIN [Concomitant]
     Active Substance: INSULIN NOS
     Dosage: 12 UNITS
     Route: 065
  5. LOPRESSOR [Concomitant]
     Active Substance: METOPROLOL TARTRATE
     Route: 065
  6. HEPARIN [Concomitant]
     Active Substance: HEPARIN SODIUM
     Dosage: 1000 UNITS
     Route: 041
  7. ENTERIC COATED ASPIRIN [Concomitant]
     Active Substance: ASPIRIN
     Route: 048
  8. HEPARIN [Concomitant]
     Active Substance: HEPARIN SODIUM
     Dosage: 10000 UNITS
     Route: 040
  9. NTG [Concomitant]
     Active Substance: NITROGLYCERIN
     Route: 041
  10. NTG [Concomitant]
     Active Substance: NITROGLYCERIN
     Route: 041
  11. LASIX [Concomitant]
     Active Substance: FUROSEMIDE
     Route: 065
  12. ACTIVASE [Suspect]
     Active Substance: ALTEPLASE
     Indication: ACUTE MYOCARDIAL INFARCTION
     Route: 040
     Dates: start: 19950207
  13. NTG [Concomitant]
     Active Substance: NITROGLYCERIN
     Route: 060
  14. LASIX [Concomitant]
     Active Substance: FUROSEMIDE
     Route: 042
  15. NTG [Concomitant]
     Active Substance: NITROGLYCERIN
     Route: 041
  16. NTG [Concomitant]
     Active Substance: NITROGLYCERIN
     Route: 041
  17. NTG [Concomitant]
     Active Substance: NITROGLYCERIN
     Route: 041
  18. ENTERIC COATED ASPIRIN [Concomitant]
     Active Substance: ASPIRIN
     Route: 065

REACTIONS (4)
  - Dyspnoea [Unknown]
  - Skin fissures [Unknown]
  - Chest pain [Unknown]
  - Sinus bradycardia [Unknown]

NARRATIVE: CASE EVENT DATE: 19950207
